FAERS Safety Report 11239478 (Version 1)
Quarter: 2015Q3

REPORT INFORMATION
  Report Type: Spontaneous
  Country: US (occurrence: None)
  Receive Date: 20150701
  Receipt Date: 20150701
  Transmission Date: 20151125
  Serious: Yes (Disabling)
  Sender: FDA-Public Use
  Company Number: None

PATIENT
  Age: 66 Year
  Sex: Female
  Weight: 62.14 kg

DRUGS (6)
  1. MULTIPLE VITAMINS AND MINERALS [Concomitant]
  2. B-D INSULIN SYRINGES [Concomitant]
  3. LANTUS [Suspect]
     Active Substance: INSULIN GLARGINE
     Indication: TYPE 1 DIABETES MELLITUS
     Dosage: AM-12 UNITS, PM-5 UINTS ?GIVEN INTO/UNDER THE SKIN
     Route: 042
  4. APIDRA [Suspect]
     Active Substance: INSULIN GLULISINE
     Indication: TYPE 1 DIABETES MELLITUS
     Dosage: 0.3 UNITS EVERY 4 HOURS?GIVEN INTO/UNDER THE SKIN
     Route: 042
  5. LEVOTHYROXIN [Concomitant]
     Active Substance: LEVOTHYROXINE
  6. BENADRYL [Concomitant]
     Active Substance: DIPHENHYDRAMINE HYDROCHLORIDE

REACTIONS (4)
  - Drug ineffective [None]
  - Product quality issue [None]
  - Diabetes mellitus inadequate control [None]
  - Blood glucose increased [None]

NARRATIVE: CASE EVENT DATE: 20150630
